FAERS Safety Report 7357279-6 (Version None)
Quarter: 2011Q1

REPORT INFORMATION
  Report Type: 
  Country: None (occurrence: None)
  Receive Date: 20110311
  Receipt Date: 20110311
  Transmission Date: 20110831
  Serious: Yes (Other)
  Sender: FDA-Public Use
  Company Number: None

PATIENT
  Age: 50 Year
  Sex: Female
  Weight: 92.5338 kg

DRUGS (1)
  1. BOTOX [Suspect]
     Indication: SKIN COSMETIC PROCEDURE
     Dosage: 30 UNITS ONE TIME

REACTIONS (4)
  - NO THERAPEUTIC RESPONSE [None]
  - NAUSEA [None]
  - BLOOD PRESSURE INCREASED [None]
  - TENSION HEADACHE [None]
